FAERS Safety Report 6772385-2 (Version None)
Quarter: 2010Q2

REPORT INFORMATION
  Report Type: 
  Country: None (occurrence: None)
  Receive Date: 20100616
  Receipt Date: 20090715
  Transmission Date: 20101027
  Serious: No
  Sender: FDA-Public Use
  Company Number: US-ASTRAZENECA-2009UW02420

PATIENT
  Age: 63 Year
  Sex: Female
  Weight: 59.9 kg

DRUGS (7)
  1. PULMICORT FLEXHALER [Suspect]
     Indication: ASTHMA
     Dosage: 2 PUFFS
     Route: 055
     Dates: start: 20060710
  2. SYMBICORT [Suspect]
     Dosage: 2 PUFFS
     Route: 055
     Dates: start: 20090201
  3. NEXIUM [Concomitant]
     Indication: REFLUX LARYNGITIS
  4. SIMVASTATIN [Concomitant]
  5. BENADRYL [Concomitant]
  6. SINGULAIR [Concomitant]
  7. RHINOCORT [Concomitant]
     Indication: RHINITIS ALLERGIC

REACTIONS (5)
  - BLOOD PRESSURE INCREASED [None]
  - DIABETES MELLITUS [None]
  - EXTRASYSTOLES [None]
  - HEART RATE INCREASED [None]
  - SLEEP DISORDER [None]
